FAERS Safety Report 25998239 (Version 1)
Quarter: 2025Q4

REPORT INFORMATION
  Report Type: Report from Study
  Country: CA (occurrence: CA)
  Receive Date: 20251105
  Receipt Date: 20251105
  Transmission Date: 20260118
  Serious: Yes (Hospitalization, Other)
  Sender: GILEAD
  Company Number: CA-GSK-CA2025139655

PATIENT
  Age: 63 Year
  Sex: Female

DRUGS (1)
  1. AMBRISENTAN [Suspect]
     Active Substance: AMBRISENTAN
     Indication: Pulmonary hypertension
     Dosage: 10 MG, QD
     Route: 065
     Dates: start: 20101217

REACTIONS (3)
  - Pneumonia [Unknown]
  - Pleural effusion [Unknown]
  - Pericardial effusion [Unknown]
